FAERS Safety Report 15714011 (Version 5)
Quarter: 2019Q2

REPORT INFORMATION
  Report Type: Spontaneous
  Country: CA (occurrence: CA)
  Receive Date: 20181212
  Receipt Date: 20190522
  Transmission Date: 20190711
  Serious: Yes (Disabling, Other)
  Sender: FDA-Public Use
  Company Number: CA-PFIZER INC-2018510705

PATIENT
  Sex: Female

DRUGS (12)
  1. INDOMETACIN [Suspect]
     Active Substance: INDOMETHACIN
     Dosage: 50 MILLIGRAM, Q6H
     Route: 048
  2. ACTEMRA [Suspect]
     Active Substance: TOCILIZUMAB
     Dosage: 4 MG/KG, Q4WK (1 EVERY 4)
     Route: 042
  3. INDOMETACIN [Suspect]
     Active Substance: INDOMETHACIN
     Dosage: 50 MILLIGRAM (4 EVERY 1 DAY)
     Route: 048
  4. ENBREL [Suspect]
     Active Substance: ETANERCEPT
     Indication: RHEUMATOID ARTHRITIS
     Dosage: 50 MG, UNK
     Route: 058
  5. METHOTREXATE SODIUM. [Suspect]
     Active Substance: METHOTREXATE SODIUM
     Indication: RHEUMATOID ARTHRITIS
     Dosage: 25 MG, UNK
     Route: 048
  6. REMICADE [Suspect]
     Active Substance: INFLIXIMAB
     Dosage: 3 MILLIGRAM/KILOGRAM
     Route: 042
  7. REMICADE [Suspect]
     Active Substance: INFLIXIMAB
     Dosage: 3 MG/KG, Q8WK
     Route: 042
  8. INDOMETHACIN [INDOMETACIN] [Concomitant]
     Active Substance: INDOMETHACIN
     Dosage: UNK
  9. INDOMETACIN [Suspect]
     Active Substance: INDOMETHACIN
     Dosage: 50 MILLIGRAM, TID
     Route: 048
  10. HYDROXYCHLOROQUINE SULFATE. [Suspect]
     Active Substance: HYDROXYCHLOROQUINE SULFATE
     Indication: RHEUMATOID ARTHRITIS
     Dosage: 200 MILLIGRAM, TWO EVERY ONE DAY
     Route: 048
  11. ARAVA [Suspect]
     Active Substance: LEFLUNOMIDE
     Dosage: UNK
     Route: 065
  12. PLAQUENIL [Suspect]
     Active Substance: HYDROXYCHLOROQUINE SULFATE
     Indication: RHEUMATOID ARTHRITIS
     Dosage: 200 MG, BID
     Route: 048

REACTIONS (6)
  - Joint swelling [Unknown]
  - Hand deformity [Unknown]
  - Polyarthritis [Unknown]
  - Drug ineffective [Unknown]
  - Arthralgia [Unknown]
  - Impaired work ability [Unknown]
